FAERS Safety Report 24827703 (Version 1)
Quarter: 2025Q1

REPORT INFORMATION
  Report Type: Spontaneous
  Country: IL (occurrence: IL)
  Receive Date: 20250109
  Receipt Date: 20250109
  Transmission Date: 20250409
  Serious: No
  Sender: JAZZ
  Company Number: IL-JAZZ PHARMACEUTICALS-2024-IL-011246

PATIENT
  Sex: Male

DRUGS (1)
  1. ZEPZELCA [Suspect]
     Active Substance: LURBINECTEDIN
     Indication: Bladder cancer

REACTIONS (3)
  - Off label use [Unknown]
  - Phlebitis [Unknown]
  - Fatigue [Unknown]
